APPROVED DRUG PRODUCT: MIGLUSTAT
Active Ingredient: MIGLUSTAT
Strength: 100MG
Dosage Form/Route: CAPSULE;ORAL
Application: A209325 | Product #001
Applicant: CHARTWELL RX SCIENCES LLC
Approved: Feb 3, 2022 | RLD: No | RS: No | Type: DISCN